FAERS Safety Report 9764603 (Version 1)
Quarter: 2013Q4

REPORT INFORMATION
  Report Type: Spontaneous
  Country: US (occurrence: US)
  Receive Date: 20131217
  Receipt Date: 20131217
  Transmission Date: 20140711
  Serious: Yes (Other)
  Sender: FDA-Public Use
  Company Number: US-RB-060776-13

PATIENT
  Age: 69 Year
  Sex: Female

DRUGS (11)
  1. MUCINEX DM MAXIMUM STRENGTH [Suspect]
     Indication: PRODUCT USED FOR UNKNOWN INDICATION
     Route: 048
     Dates: start: 20131125
  2. MUCINEX DM MAXIMUM STRENGTH [Suspect]
     Dosage: TOOK 2 TABLETS ON 26/NOV/2013 AND 27/NOV/2013
     Route: 048
     Dates: start: 20131126
  3. WARFARIN [Concomitant]
     Dosage: TOOK ONCE PER DAY ON TUESDAY AND SATURDAY
  4. WARFARIN [Concomitant]
     Indication: PRODUCT USED FOR UNKNOWN INDICATION
     Dosage: TOOK ONCE PER DAY ON SUNDAY AND MONDAY
  5. SOTALOL [Concomitant]
     Indication: PRODUCT USED FOR UNKNOWN INDICATION
     Dosage: TOOK 40 MG IN THE MORNING, 40 MG AROUND 2:00 ,AND 120 MG AT BEDTIME.
  6. LIPITOR [Concomitant]
     Indication: PRODUCT USED FOR UNKNOWN INDICATION
     Dosage: TOOK 40MG DAILY
  7. PRILOSEC [Concomitant]
     Indication: PRODUCT USED FOR UNKNOWN INDICATION
     Dosage: TOOK 20 MG PER DAY
  8. XANAX [Concomitant]
     Indication: PRODUCT USED FOR UNKNOWN INDICATION
  9. MAXALT [Concomitant]
     Indication: MIGRAINE
     Dosage: TOOK 2 1/2 MG, WHEN NEEDED FOR MIGRAINES
  10. VIVELLE DOT [Concomitant]
     Indication: PRODUCT USED FOR UNKNOWN INDICATION
     Dosage: 0.0375 MG, PATCH WORN DAILY, CHANGED ONCE PER WEEK
  11. VITAMINS [Concomitant]
     Indication: PRODUCT USED FOR UNKNOWN INDICATION

REACTIONS (1)
  - Atrial fibrillation [Recovered/Resolved]
